FAERS Safety Report 6252072-X (Version None)
Quarter: 2009Q2

REPORT INFORMATION
  Report Type: 
  Country: None (occurrence: None)
  Receive Date: 20090630
  Receipt Date: 20050130
  Transmission Date: 20091009
  Serious: Yes (Hospitalization)
  Sender: FDA-Public Use
  Company Number: US-ROCHE-638765

PATIENT
  Sex: Male

DRUGS (11)
  1. ENFUVIRTIDE [Suspect]
     Route: 065
     Dates: start: 20040304, end: 20050801
  2. RETROVIR [Concomitant]
     Dates: start: 20020627, end: 20050801
  3. APTIVUS [Concomitant]
     Dates: start: 20040304, end: 20050801
  4. APTIVUS [Concomitant]
     Dates: start: 20051011, end: 20080508
  5. NORVIR [Concomitant]
     Dates: start: 20040304, end: 20050801
  6. NORVIR [Concomitant]
     Dates: start: 20051011, end: 20080613
  7. VIREAD [Concomitant]
     Dosage: FREQUENCY: QD.
     Dates: start: 20040304, end: 20050801
  8. VIREAD [Concomitant]
     Dosage: FREQUENCY: QD
     Dates: start: 20051011, end: 20071026
  9. ATOVAQUONE [Concomitant]
     Dosage: FREQUENCY: QD
     Dates: start: 20010104, end: 20040607
  10. ZITHROMAX [Concomitant]
     Dates: start: 20020430, end: 20080814
  11. PENTAM [Concomitant]
     Dosage: FREQUENCY: GMO
     Dates: start: 20040621, end: 20080814

REACTIONS (1)
  - HERPES ZOSTER [None]
